FAERS Safety Report 25593450 (Version 1)
Quarter: 2025Q3

REPORT INFORMATION
  Report Type: Spontaneous
  Country: US (occurrence: US)
  Receive Date: 20250722
  Receipt Date: 20250722
  Transmission Date: 20251021
  Serious: No
  Sender: ALEXION PHARMACEUTICALS
  Company Number: US-AstraZeneca-CH-00910449A

PATIENT
  Sex: Female

DRUGS (1)
  1. FARXIGA [Suspect]
     Active Substance: DAPAGLIFLOZIN PROPANEDIOL
     Route: 065

REACTIONS (8)
  - Erythema [Unknown]
  - Pain [Unknown]
  - Pruritus genital [Unknown]
  - Genital pain [Unknown]
  - Female reproductive tract disorder [Unknown]
  - Genital burning sensation [Unknown]
  - Genital discharge [Unknown]
  - Hysterectomy [Unknown]
